FAERS Safety Report 19773044 (Version 4)
Quarter: 2023Q4

REPORT INFORMATION
  Report Type: Spontaneous
  Country: DE (occurrence: DE)
  Receive Date: 20210901
  Receipt Date: 20231106
  Transmission Date: 20240110
  Serious: Yes (Other)
  Sender: FDA-Public Use
  Company Number: DE-ARISTO PHARMA-CODE-FENT-LEVOM-LORA-MORP-PREG202103131

PATIENT
  Age: 31 Year
  Sex: Female

DRUGS (18)
  1. TRAMADOL [Interacting]
     Active Substance: TRAMADOL\TRAMADOL HYDROCHLORIDE
     Indication: Product used for unknown indication
     Dosage: 37 MICROGRAM PER LITRE
     Route: 065
  2. TRAMADOL [Interacting]
     Active Substance: TRAMADOL\TRAMADOL HYDROCHLORIDE
     Dosage: UNK
     Route: 065
  3. LORAZEPAM [Interacting]
     Active Substance: LORAZEPAM
     Indication: Product used for unknown indication
     Dosage: 3.5 MICROGRAM PER LITRE
     Route: 065
  4. PREGABALIN [Interacting]
     Active Substance: PREGABALIN
     Indication: Product used for unknown indication
     Dosage: 2300 MICROGRAM PER LITRE
     Route: 065
  5. PREGABALIN [Interacting]
     Active Substance: PREGABALIN
     Dosage: UNK
     Route: 065
  6. FENTANYL [Interacting]
     Active Substance: FENTANYL\FENTANYL CITRATE
     Indication: Product used for unknown indication
     Dosage: 4.2MCG/L A-PVT PLASMA CONCENTRATION
     Route: 065
  7. MORPHINE [Suspect]
     Active Substance: MORPHINE
     Indication: Product used for unknown indication
     Dosage: UNK
     Route: 065
  8. CODEINE [Interacting]
     Active Substance: CODEINE
     Indication: Product used for unknown indication
     Dosage: 2.3 MICROGRAM PER LITRE
     Route: 065
  9. CODEINE [Interacting]
     Active Substance: CODEINE
     Dosage: UNK
     Route: 065
  10. MORPHINE [Interacting]
     Active Substance: MORPHINE
     Indication: Product used for unknown indication
     Dosage: 5.5 MICROGRAM PER LITRE
  11. ACETAMINOPHEN\CAFFEINE\PROPYPHENAZONE [Suspect]
     Active Substance: ACETAMINOPHEN\CAFFEINE\PROPYPHENAZONE
     Indication: Product used for unknown indication
     Dosage: UNK
  12. METHADONE [Interacting]
     Active Substance: METHADONE HYDROCHLORIDE
     Indication: Product used for unknown indication
     Dosage: 350 MICROGRAM PER LITRE
     Route: 065
  13. METHADONE [Interacting]
     Active Substance: METHADONE HYDROCHLORIDE
     Dosage: UNK
     Route: 065
  14. LEVOMETHADONE [Suspect]
     Active Substance: LEVOMETHADONE
     Indication: Product used for unknown indication
     Dosage: UNK
  15. ACETAMINOPHEN [Suspect]
     Active Substance: ACETAMINOPHEN
     Indication: Product used for unknown indication
     Dosage: UNK
     Route: 065
  16. BENZOYLECGONINE [Suspect]
     Active Substance: BENZOYLECGONINE
     Indication: Product used for unknown indication
     Dosage: 0.89 MICROGRAM PER LITRE
     Route: 065
  17. ACETAMINOPHEN [Concomitant]
     Active Substance: ACETAMINOPHEN
     Indication: Product used for unknown indication
     Dosage: UNK
     Route: 065
  18. AMITRIPTYLINE [Suspect]
     Active Substance: AMITRIPTYLINE
     Indication: Product used for unknown indication
     Dosage: UNK
     Route: 065

REACTIONS (3)
  - Drug interaction [Unknown]
  - Drug abuse [Unknown]
  - Drug dependence [Unknown]
